FAERS Safety Report 10656119 (Version 2)
Quarter: 2015Q1

REPORT INFORMATION
  Report Type: Spontaneous
  Country: US (occurrence: US)
  Receive Date: 20141216
  Receipt Date: 20150203
  Transmission Date: 20150720
  Serious: Yes (Hospitalization)
  Sender: FDA-Public Use
  Company Number: US-BAYER-2014-184496

PATIENT
  Age: 36 Year
  Sex: Female
  Weight: 81.63 kg

DRUGS (7)
  1. SYNTHROID [Concomitant]
     Active Substance: LEVOTHYROXINE SODIUM
     Indication: HYPOTHYROIDISM
     Dosage: UNK
     Route: 048
     Dates: start: 2002
  2. CALCIUM [Concomitant]
     Active Substance: CALCIUM
  3. PRILOSEC [Concomitant]
     Active Substance: OMEPRAZOLE MAGNESIUM
  4. AMOXICILLIN AND CLAVULANATE POTASSIUM [Concomitant]
     Active Substance: AMOXICILLIN\CLAVULANATE POTASSIUM
     Dosage: 875/125
     Route: 048
     Dates: start: 20070410
  5. ASTELIN [Concomitant]
     Active Substance: AZELASTINE HYDROCHLORIDE
  6. MIRENA [Suspect]
     Active Substance: LEVONORGESTREL
     Dosage: 20 MCG/DL, CONT
     Route: 015
     Dates: start: 20060710, end: 20070919
  7. DEXAMETHASONE. [Concomitant]
     Active Substance: DEXAMETHASONE
     Indication: ADRENOGENITAL SYNDROME
     Dosage: UNK
     Route: 048
     Dates: start: 2002

REACTIONS (12)
  - Genital haemorrhage [None]
  - Pelvic pain [None]
  - Depression [None]
  - Internal injury [None]
  - Medical device discomfort [None]
  - Uterine perforation [None]
  - Abdominal pain [None]
  - Anxiety [None]
  - Depressed mood [None]
  - Fear [None]
  - Injury [None]
  - Emotional distress [None]

NARRATIVE: CASE EVENT DATE: 200707
